FAERS Safety Report 7473569-0 (Version None)
Quarter: 2011Q1

REPORT INFORMATION
  Report Type: 
  Country: None (occurrence: None)
  Receive Date: 20110302
  Receipt Date: 20100816
  Transmission Date: 20110831
  Serious: Yes (Other)
  Sender: FDA-Public Use
  Company Number: 163-21880-10081452

PATIENT
  Sex: Female

DRUGS (4)
  1. REVLIMID [Suspect]
     Indication: MULTIPLE MYELOMA
     Dosage: 5 MG, QD X 21 DAYS/OFF 7 DAYS, PO; 15 MG, 1 IN 1 D, PO; 25 MG, 1 IN 1 D, PO; 25 MG, 1 IN 1 D, PO
     Route: 048
     Dates: start: 20090601
  2. REVLIMID [Suspect]
     Indication: MULTIPLE MYELOMA
     Dosage: 5 MG, QD X 21 DAYS/OFF 7 DAYS, PO; 15 MG, 1 IN 1 D, PO; 25 MG, 1 IN 1 D, PO; 25 MG, 1 IN 1 D, PO
     Route: 048
     Dates: start: 20081201
  3. REVLIMID [Suspect]
     Indication: MULTIPLE MYELOMA
     Dosage: 5 MG, QD X 21 DAYS/OFF 7 DAYS, PO; 15 MG, 1 IN 1 D, PO; 25 MG, 1 IN 1 D, PO; 25 MG, 1 IN 1 D, PO
     Route: 048
     Dates: start: 20071001
  4. REVLIMID [Suspect]
     Indication: MULTIPLE MYELOMA
     Dosage: 5 MG, QD X 21 DAYS/OFF 7 DAYS, PO; 15 MG, 1 IN 1 D, PO; 25 MG, 1 IN 1 D, PO; 25 MG, 1 IN 1 D, PO
     Route: 048
     Dates: start: 20100801, end: 20100802

REACTIONS (2)
  - PROTEIN TOTAL ABNORMAL [None]
  - RED BLOOD CELL COUNT DECREASED [None]
